FAERS Safety Report 21048555 (Version 1)
Quarter: 2022Q3

REPORT INFORMATION
  Report Type: Spontaneous
  Country: CA (occurrence: CA)
  Receive Date: 20220706
  Receipt Date: 20220706
  Transmission Date: 20221026
  Serious: Yes (Death, Other)
  Sender: FDA-Public Use
  Company Number: CA-PFIZER INC-202200925408

PATIENT
  Sex: Male

DRUGS (5)
  1. METHYLPREDNISOLONE [Suspect]
     Active Substance: METHYLPREDNISOLONE
  2. CYCLOSPORINE [Suspect]
     Active Substance: CYCLOSPORINE
  3. RUXOLITINIB [Suspect]
     Active Substance: RUXOLITINIB
     Indication: Graft versus host disease
     Dosage: 5 MG, 2X/DAY
     Route: 048
  4. RUXOLITINIB [Suspect]
     Active Substance: RUXOLITINIB
     Dosage: UNK
  5. ALEMTUZUMAB [Concomitant]
     Active Substance: ALEMTUZUMAB
     Indication: Graft versus host disease
     Dosage: 10 MG, WEEKLY

REACTIONS (4)
  - Pneumothorax [Fatal]
  - Graft versus host disease in gastrointestinal tract [Fatal]
  - Disease progression [Fatal]
  - Drug ineffective [Fatal]
